FAERS Safety Report 21233463 (Version 6)
Quarter: 2022Q3

REPORT INFORMATION
  Report Type: Spontaneous
  Country: CN (occurrence: CN)
  Receive Date: 20220819
  Receipt Date: 20220907
  Transmission Date: 20221026
  Serious: Yes (Hospitalization)
  Sender: FDA-Public Use
  Company Number: CN-BoehringerIngelheim-2022-BI-187044

PATIENT
  Age: 77 Year
  Sex: Male
  Weight: 71 kg

DRUGS (3)
  1. ALTEPLASE [Suspect]
     Active Substance: ALTEPLASE
     Indication: Thrombolysis
     Dosage: A TOTAL OF 63.9 MG ALTEPLASE FOR INJECTION WAS ADMINISTERED. THE PATIENT WAS PREPARED INTO 1 MG/ML S
     Route: 042
     Dates: start: 20220801, end: 202208
  2. ALTEPLASE [Suspect]
     Active Substance: ALTEPLASE
     Dosage: A TOTAL OF 63.9 MG ALTEPLASE FOR INJECTION WAS ADMINISTERED. THE PATIENT WAS PREPARED INTO 1 MG/ML S
     Route: 042
     Dates: start: 202208, end: 20220802
  3. SODIUM CHLORIDE [Concomitant]
     Active Substance: SODIUM CHLORIDE
     Indication: Medication dilution
     Route: 042
     Dates: start: 20220801, end: 20220802

REACTIONS (4)
  - Cerebral haemorrhage [Not Recovered/Not Resolved]
  - Hyperhidrosis [Not Recovered/Not Resolved]
  - Asthenia [Not Recovered/Not Resolved]
  - Dysarthria [Not Recovered/Not Resolved]

NARRATIVE: CASE EVENT DATE: 20220802
